FAERS Safety Report 22169015 (Version 1)
Quarter: 2023Q2

REPORT INFORMATION
  Report Type: Other
  Country: UA (occurrence: None)
  Receive Date: 20230404
  Receipt Date: 20230404
  Transmission Date: 20230721
  Serious: Yes (Death)
  Sender: FDA-Public Use
  Company Number: UA-ROCHE-3323277

PATIENT
  Age: 60 Year
  Sex: Female

DRUGS (5)
  1. OSELTAMIVIR [Suspect]
     Active Substance: OSELTAMIVIR
     Indication: COVID-19
     Route: 065
  2. CEFTRIAXONE [Concomitant]
     Active Substance: CEFTRIAXONE
  3. AZITHROMYCIN [Concomitant]
     Active Substance: AZITHROMYCIN
  4. FUROSEMIDE [Concomitant]
     Active Substance: FUROSEMIDE
  5. ENOXAPARIN [Concomitant]
     Active Substance: ENOXAPARIN

REACTIONS (3)
  - Bronchopulmonary aspergillosis [Fatal]
  - Disease progression [Fatal]
  - Off label use [Unknown]
